FAERS Safety Report 21397805 (Version 1)
Quarter: 2022Q3

REPORT INFORMATION
  Report Type: Spontaneous
  Country: JP (occurrence: JP)
  Receive Date: 20220930
  Receipt Date: 20220930
  Transmission Date: 20221027
  Serious: Yes (Life-Threatening, Other)
  Sender: FDA-Public Use
  Company Number: JP-TAKEDA-2022TJP074523

PATIENT

DRUGS (1)
  1. ZEJULA [Suspect]
     Active Substance: NIRAPARIB
     Indication: Ovarian cancer metastatic
     Dosage: UNK
     Route: 048

REACTIONS (4)
  - Febrile neutropenia [Unknown]
  - Septic shock [Recovering/Resolving]
  - Disseminated intravascular coagulation [Unknown]
  - Pancytopenia [Unknown]
